FAERS Safety Report 8423052-0 (Version None)
Quarter: 2012Q2

REPORT INFORMATION
  Report Type: 
  Country: None (occurrence: None)
  Receive Date: 20120608
  Receipt Date: 20120530
  Transmission Date: 20120825
  Serious: Yes (Hospitalization)
  Sender: FDA-Public Use
  Company Number: JP-JNJFOC-20120519992

PATIENT
  Sex: Female
  Weight: 53 kg

DRUGS (6)
  1. EVISTA [Concomitant]
     Route: 048
  2. URSO 250 [Concomitant]
     Route: 048
  3. GOLIMUMAB [Suspect]
     Route: 058
     Dates: start: 20111216
  4. AMLODIPINE [Concomitant]
     Route: 048
  5. GOLIMUMAB [Suspect]
     Indication: PRODUCT USED FOR UNKNOWN INDICATION
     Dosage: 4TH DOSE
     Route: 058
     Dates: start: 20120406
  6. MUCOSTA [Concomitant]
     Route: 048

REACTIONS (1)
  - ERYTHEMA MULTIFORME [None]
